FAERS Safety Report 6795257-6 (Version None)
Quarter: 2010Q2

REPORT INFORMATION
  Report Type: 
  Country: None (occurrence: None)
  Receive Date: 20100625
  Receipt Date: 20100615
  Transmission Date: 20101027
  Serious: Yes (Hospitalization)
  Sender: FDA-Public Use
  Company Number: US-ABBOTT-10P-163-0652211-00

PATIENT
  Age: 19 Year
  Sex: Female
  Weight: 65.83 kg

DRUGS (14)
  1. DEPAKOTE ER [Suspect]
     Indication: IMPULSIVE BEHAVIOUR
     Dosage: ONCE
     Route: 048
     Dates: start: 20100523, end: 20100524
  2. DEPAKOTE ER [Suspect]
     Indication: AGGRESSION
     Route: 048
     Dates: start: 20100524, end: 20100601
  3. DEPAKOTE ER [Suspect]
     Dates: start: 20100601, end: 20100601
  4. DEPAKOTE ER [Suspect]
     Dates: start: 20100608, end: 20100615
  5. PRECEDEX [Concomitant]
     Indication: DRUG USE FOR UNKNOWN INDICATION
  6. LORAZEPAM [Concomitant]
     Indication: DRUG USE FOR UNKNOWN INDICATION
  7. VERSED [Concomitant]
     Indication: DRUG USE FOR UNKNOWN INDICATION
  8. DIAZEPAM [Concomitant]
     Indication: DRUG USE FOR UNKNOWN INDICATION
  9. ZITIS [Concomitant]
     Indication: DRUG USE FOR UNKNOWN INDICATION
     Dosage: EASILY DISSOLVABLE TABLETS
  10. TRAZODONE HYDROCHLORIDE [Concomitant]
     Indication: DRUG USE FOR UNKNOWN INDICATION
  11. ARTANE [Concomitant]
     Indication: DRUG USE FOR UNKNOWN INDICATION
  12. PRAZOSIN HCL [Concomitant]
     Indication: DRUG USE FOR UNKNOWN INDICATION
  13. SEROQUEL [Concomitant]
     Indication: DRUG USE FOR UNKNOWN INDICATION
  14. HALDOL [Concomitant]
     Indication: DRUG USE FOR UNKNOWN INDICATION

REACTIONS (13)
  - AMMONIA INCREASED [None]
  - CONFUSIONAL STATE [None]
  - DRUG LEVEL DECREASED [None]
  - DYSKINESIA [None]
  - GRIMACING [None]
  - HYPOAESTHESIA [None]
  - IMPULSIVE BEHAVIOUR [None]
  - MONOCYTE COUNT INCREASED [None]
  - MUSCULOSKELETAL STIFFNESS [None]
  - STRABISMUS [None]
  - URINARY INCONTINENCE [None]
  - VOMITING [None]
  - WRONG TECHNIQUE IN DRUG USAGE PROCESS [None]
